FAERS Safety Report 4343646-1 (Version None)
Quarter: 2004Q2

REPORT INFORMATION
  Report Type: 
  Country: None (occurrence: None)
  Receive Date: 20040421
  Receipt Date: 20040421
  Transmission Date: 20050107
  Serious: Yes (Hospitalization)
  Sender: FDA-Public Use
  Company Number: None

PATIENT
  Age: 68 Year
  Sex: Male
  Weight: 63 kg

DRUGS (1)
  1. LITHIUM CARBONATE [Suspect]
     Indication: BIPOLAR DISORDER
     Dosage: 300 MG PO BID
     Route: 048
     Dates: start: 20040105, end: 20040213

REACTIONS (3)
  - DRUG LEVEL INCREASED [None]
  - FATIGUE [None]
  - LOOSE STOOLS [None]
